FAERS Safety Report 8530204-8 (Version None)
Quarter: 2012Q3

REPORT INFORMATION
  Report Type: 
  Country: None (occurrence: None)
  Receive Date: 20120710
  Receipt Date: 20120627
  Transmission Date: 20120928
  Serious: Yes (Other)
  Sender: FDA-Public Use
  Company Number: 2012AT000375

PATIENT
  Age: 65 Year
  Sex: Male

DRUGS (1)
  1. EDEX [Suspect]
     Indication: ERECTILE DYSFUNCTION
     Dosage: 20 UG; BIW; ICAN
     Dates: start: 20110101

REACTIONS (1)
  - TOXIC SKIN ERUPTION [None]
